FAERS Safety Report 8442266-7 (Version None)
Quarter: 2012Q2

REPORT INFORMATION
  Report Type: 
  Country: None (occurrence: None)
  Receive Date: 20120323
  Receipt Date: 20110624
  Transmission Date: 20120825
  Serious: Yes (Hospitalization)
  Sender: FDA-Public Use
  Company Number: 163-21880-11063438

PATIENT
  Age: 57 Year
  Sex: Male

DRUGS (6)
  1. REVLIMID [Suspect]
     Indication: MULTIPLE MYELOMA
     Dosage: 25 MG, DAILY X14D/21D, PO
     Route: 048
     Dates: start: 20110609, end: 20110622
  2. ACYCLOVIR [Concomitant]
  3. CYANOCOBALAMIN [Concomitant]
  4. VARDENAFIL HYDROCHLORIDE (LEVITRA) [Concomitant]
  5. PROCHLORPERAZINE [Concomitant]
  6. OMEPRAZOLE [Concomitant]

REACTIONS (1)
  - PYREXIA [None]
